FAERS Safety Report 18486661 (Version 1)
Quarter: 2020Q4

REPORT INFORMATION
  Report Type: Spontaneous
  Country: CA (occurrence: CA)
  Receive Date: 20201110
  Receipt Date: 20201110
  Transmission Date: 20210114
  Serious: Yes (Death, Hospitalization, Other)
  Sender: FDA-Public Use
  Company Number: CA-GLAXOSMITHKLINE-CA2020GSK222541

PATIENT
  Sex: Male

DRUGS (2)
  1. AVANDIA [Suspect]
     Active Substance: ROSIGLITAZONE MALEATE
     Dosage: 4 MG
     Route: 065
     Dates: start: 20050626, end: 20051101
  2. AVANDIA [Suspect]
     Active Substance: ROSIGLITAZONE MALEATE
     Indication: DIABETES MELLITUS
     Dosage: UNK, QD
     Route: 048
     Dates: start: 20050110, end: 20050626

REACTIONS (13)
  - Myocardial infarction [Unknown]
  - Aortic valve incompetence [Unknown]
  - Chest pain [Unknown]
  - Coronary artery disease [Unknown]
  - Cardiac failure congestive [Unknown]
  - Ischaemic cardiomyopathy [Unknown]
  - Ventricular tachycardia [Unknown]
  - Vascular graft [Unknown]
  - Cardiac disorder [Unknown]
  - Coronary artery bypass [Unknown]
  - Death [Fatal]
  - Ventricular arrhythmia [Unknown]
  - Ventricular fibrillation [Unknown]
